FAERS Safety Report 12877391 (Version 4)
Quarter: 2017Q1

REPORT INFORMATION
  Report Type: Spontaneous
  Country: JP (occurrence: JP)
  Receive Date: 20161024
  Receipt Date: 20170201
  Transmission Date: 20170428
  Serious: Yes (Hospitalization, Other)
  Sender: FDA-Public Use
  Company Number: PHJP2016JP030028

PATIENT
  Age: 82 Year
  Sex: Female
  Weight: 46.15 kg

DRUGS (15)
  1. OXAROL [Suspect]
     Active Substance: MAXACALCITOL
     Indication: PUSTULAR PSORIASIS
     Dosage: 7 G, QD
     Route: 061
     Dates: start: 20160920, end: 20161004
  2. SOLON [Concomitant]
     Active Substance: SOFALCONE
     Indication: PRODUCT USED FOR UNKNOWN INDICATION
     Dosage: 50 MG, QD
     Route: 048
  3. ETIZOLAM [Concomitant]
     Active Substance: ETIZOLAM
     Indication: PRODUCT USED FOR UNKNOWN INDICATION
     Dosage: 1.0 MG, QD
     Route: 048
  4. NEXIUM [Concomitant]
     Active Substance: ESOMEPRAZOLE MAGNESIUM
     Indication: PRODUCT USED FOR UNKNOWN INDICATION
     Dosage: 20 MG, QD
     Route: 048
  5. LEVOTHYROXINE. [Concomitant]
     Active Substance: LEVOTHYROXINE
     Indication: PRODUCT USED FOR UNKNOWN INDICATION
     Dosage: 25 UG, QD
     Route: 048
  6. SENNOSIDE [Concomitant]
     Active Substance: SENNOSIDES
     Indication: PRODUCT USED FOR UNKNOWN INDICATION
     Dosage: 24 MG, UNK
     Route: 048
  7. COSENTYX [Suspect]
     Active Substance: SECUKINUMAB
     Indication: PUSTULAR PSORIASIS
     Dosage: 300 MG, QW
     Route: 058
     Dates: start: 20150522, end: 20150619
  8. TIGASON [Concomitant]
     Active Substance: ETRETINATE
     Indication: PUSTULAR PSORIASIS
     Dosage: 20 MG, QD
     Route: 048
     Dates: start: 20150327
  9. FUROSEMIDE. [Concomitant]
     Active Substance: FUROSEMIDE
     Indication: PRODUCT USED FOR UNKNOWN INDICATION
     Dosage: 40 MG, QD
     Route: 048
  10. DRIED FERROUS SULPHATE [Concomitant]
     Indication: PRODUCT USED FOR UNKNOWN INDICATION
     Dosage: 210 MG, QD
     Route: 048
  11. DOVOBET [Suspect]
     Active Substance: BETAMETHASONE\CALCIPOTRIENE
     Indication: PUSTULAR PSORIASIS
     Dosage: 4 G, QD
     Route: 061
     Dates: start: 20160920, end: 20161004
  12. AZILVA [Concomitant]
     Active Substance: AZILSARTAN KAMEDOXOMIL
     Indication: PRODUCT USED FOR UNKNOWN INDICATION
     Dosage: 40 MG, QD
     Route: 048
  13. COSENTYX [Suspect]
     Active Substance: SECUKINUMAB
     Dosage: 300 MG, QW4
     Route: 058
     Dates: start: 20150717
  14. BONALFA [Concomitant]
     Indication: PUSTULAR PSORIASIS
     Dosage: UNK
     Route: 061
     Dates: end: 20160920
  15. REVOLADE [Concomitant]
     Active Substance: ELTROMBOPAG
     Indication: PRODUCT USED FOR UNKNOWN INDICATION
     Dosage: 12.5 MG, QD
     Route: 048

REACTIONS (13)
  - Intervertebral disc protrusion [Unknown]
  - Hypercalcaemia [Recovered/Resolved]
  - Asthenia [Recovered/Resolved]
  - Malaise [Recovered/Resolved]
  - Spinal column stenosis [Recovering/Resolving]
  - Gait disturbance [Unknown]
  - Hypoaesthesia [Recovered/Resolved]
  - Product use issue [Unknown]
  - Concomitant disease aggravated [Recovering/Resolving]
  - Back pain [Recovering/Resolving]
  - Pain in extremity [Unknown]
  - Intervertebral disc injury [Unknown]
  - Muscular weakness [Recovered/Resolved]

NARRATIVE: CASE EVENT DATE: 20160920
